FAERS Safety Report 6435308-1 (Version None)
Quarter: 2009Q4

REPORT INFORMATION
  Report Type: 
  Country: None (occurrence: None)
  Receive Date: 20091106
  Receipt Date: 20091022
  Transmission Date: 20100525
  Serious: Yes (Hospitalization)
  Sender: FDA-Public Use
  Company Number: 8052946

PATIENT
  Age: 29 Year
  Sex: Male

DRUGS (7)
  1. KEPPRA [Suspect]
     Indication: EPILEPSY
     Dosage: 250 MG 2/D  PO
     Route: 048
     Dates: start: 20090828, end: 20090903
  2. MORPHINE [Concomitant]
  3. ACUPIN [Concomitant]
  4. INIPOMP /01263201/ [Concomitant]
  5. PERFALGAN [Concomitant]
  6. PRIMPERAN /00041901/ [Concomitant]
  7. TRILEPTAL [Concomitant]

REACTIONS (2)
  - CHOLESTASIS [None]
  - CYTOLYTIC HEPATITIS [None]
